FAERS Safety Report 25123392 (Version 1)
Quarter: 2025Q1

REPORT INFORMATION
  Report Type: Spontaneous
  Country: DE (occurrence: DE)
  Receive Date: 20250326
  Receipt Date: 20250326
  Transmission Date: 20250408
  Serious: Yes (Other)
  Sender: BIOGEN
  Company Number: DE-BIOGEN-2025BI01304938

PATIENT
  Sex: Female

DRUGS (3)
  1. VUMERITY [Suspect]
     Active Substance: DIROXIMEL FUMARATE
     Indication: Relapsing-remitting multiple sclerosis
     Route: 050
     Dates: start: 20230717
  2. CITALOPRAM [Concomitant]
     Active Substance: CITALOPRAM
     Indication: Antidepressant therapy
     Route: 050
  3. CHOLECALCIFEROL [Concomitant]
     Active Substance: CHOLECALCIFEROL
     Indication: Product used for unknown indication
     Dosage: 20.000
     Route: 050

REACTIONS (1)
  - Gastrointestinal carcinoma [Not Recovered/Not Resolved]
